FAERS Safety Report 16925644 (Version 1)
Quarter: 2020Q3

REPORT INFORMATION
  Report Type: Spontaneous
  Country: US (occurrence: US)
  Receive Date: 20191016
  Receipt Date: 20191016
  Transmission Date: 20201104
  Serious: Yes (Hospitalization)
  Sender: FDA-Public Use
  Company Number: None

PATIENT
  Sex: Female

DRUGS (5)
  1. OXALIPLATIN. [Suspect]
     Active Substance: OXALIPLATIN
  2. CYANOCOBALAMIN. [Suspect]
     Active Substance: CYANOCOBALAMIN
     Indication: PSORIASIS
     Dosage: DOSE 1000 UGM?OTHER STRENGTH 1000 UGM
     Dates: start: 20150205
  3. VITAMIN D CAPS [Concomitant]
  4. XELODA [Suspect]
     Active Substance: CAPECITABINE
  5. HYOSCYAMINE. [Suspect]
     Active Substance: HYOSCYAMINE

REACTIONS (1)
  - Appendicectomy [None]
